FAERS Safety Report 9351519 (Version 3)
Quarter: 2014Q1

REPORT INFORMATION
  Report Type: Spontaneous
  Country: US (occurrence: US)
  Receive Date: 20130617
  Receipt Date: 20140110
  Transmission Date: 20141002
  Serious: Yes (Hospitalization, Other)
  Sender: FDA-Public Use
  Company Number: US-PFIZER INC-2012039607

PATIENT
  Age: 58 Year
  Sex: Female
  Weight: 81.63 kg

DRUGS (27)
  1. LYRICA [Suspect]
     Indication: MIGRAINE
     Dosage: 75 MG, 1X/DAY (1PM ONLY)
     Route: 048
  2. LYRICA [Suspect]
     Indication: PHOTOPHOBIA
     Dosage: 100 MG, 3X/DAY
  3. LYRICA [Suspect]
     Indication: CONVULSION
  4. LYRICA [Suspect]
     Indication: NEUROPATHY PERIPHERAL
  5. LYRICA [Suspect]
     Indication: SPINAL PAIN
  6. LYRICA [Suspect]
     Indication: SPINAL COLUMN STENOSIS
  7. LYRICA [Suspect]
     Indication: BACK PAIN
  8. LAMICTAL [Concomitant]
     Indication: MENTAL DISORDER
     Dosage: 275 MG, DAILY (150MG AM 125MG PM)
  9. HYDROXYZINE PAMOATE [Concomitant]
     Indication: ANXIETY
     Dosage: 100 MG, 2X/DAY (4X 25MG IN AM AND 4X 25 MG IN PM)
  10. PROTONIX [Concomitant]
     Indication: GASTROOESOPHAGEAL REFLUX DISEASE
     Dosage: 40 MG, 2X/DAY (40 MG 1 IN AM 1 IN PM)
  11. PRIMLEV [Concomitant]
     Indication: BACK PAIN
     Dosage: 10/300 MG, AS NEEDED
  12. DICYCLOMINE [Concomitant]
     Indication: IRRITABLE BOWEL SYNDROME
     Dosage: 20 MG, 2X/DAY (1 IN AM 1 IN PM)
  13. ADVAIR [Concomitant]
     Indication: ASTHMA
     Dosage: 50/500 MG, 2X/DAY
  14. ZOCOR [Concomitant]
     Indication: BLOOD CHOLESTEROL ABNORMAL
     Dosage: 40 MG, 1X/DAY
  15. METOPROLOL TARTRATE [Concomitant]
     Indication: BLOOD PRESSURE ABNORMAL
     Dosage: 50 MG, 2X/DAY
  16. BACLOFEN [Concomitant]
     Indication: BACK DISORDER
     Dosage: 10 MG, 2X/DAY
  17. FROVA [Concomitant]
     Indication: MIGRAINE
     Dosage: 2.5 MG, 2X/DAY
  18. ZESTRIL [Concomitant]
     Dosage: UNK
  19. MULTIVITAMINS [Concomitant]
     Dosage: UNK
  20. PRAVASTATIN [Concomitant]
     Indication: BLOOD CHOLESTEROL
     Dosage: 40 MG, 1X/DAY (1 IN AM)
  21. FOCALIN [Concomitant]
     Indication: MENTAL DISORDER
     Dosage: 20 MG, 2X/DAY
  22. FOCALIN [Concomitant]
     Indication: EPSTEIN-BARR VIRAEMIA
  23. BABY ASPIRIN [Concomitant]
     Indication: CARDIAC DISORDER
     Dosage: 81 MG, 1X/DAY
  24. FISH OIL [Concomitant]
     Indication: BLOOD TRIGLYCERIDES DECREASED
     Dosage: 1000-1500MG, 1X/DAY
  25. ESTRADIOL [Concomitant]
     Indication: MENOPAUSE
     Dosage: 0.5 MG, 1X/DAY (1 IN PM)
  26. MEDROXYPROGESTERONE ACETATE [Concomitant]
     Indication: MENOPAUSE
     Dosage: 2.5 MG, 1X/DAY (1 IN PM)
  27. NYSTATIN [Concomitant]
     Indication: RASH
     Dosage: 100,000 USP, 4X/DAY

REACTIONS (3)
  - Off label use [Unknown]
  - Drug ineffective [Unknown]
  - Pain [Unknown]
